FAERS Safety Report 5698579-5 (Version None)
Quarter: 2008Q2

REPORT INFORMATION
  Report Type: 
  Country: None (occurrence: None)
  Receive Date: 20080408
  Receipt Date: 20061005
  Transmission Date: 20081010
  Serious: No
  Sender: FDA-Public Use
  Company Number: US-BAYER-US-2006-029950

PATIENT
  Age: 64 Year
  Sex: Female
  Weight: 86 kg

DRUGS (3)
  1. CLIMARA [Suspect]
     Route: 062
     Dates: start: 20051001
  2. ZYRTEC [Concomitant]
     Indication: HYPERSENSITIVITY
  3. RHINOCORT [Concomitant]
     Indication: HYPERSENSITIVITY

REACTIONS (1)
  - APPLICATION SITE ERYTHEMA [None]
